FAERS Safety Report 23422150 (Version 1)
Quarter: 2024Q1

REPORT INFORMATION
  Report Type: Spontaneous
  Country: US (occurrence: None)
  Receive Date: 20240118
  Receipt Date: 20240118
  Transmission Date: 20240410
  Serious: Yes (unspecified)
  Sender: FDA-Public Use
  Company Number: None

PATIENT
  Age: 59 Year
  Sex: Female

DRUGS (1)
  1. TETRABENAZINE [Suspect]
     Active Substance: TETRABENAZINE
     Indication: Akathisia
     Dosage: FREQUENCY : 3 TIMES A DAY;?

REACTIONS (3)
  - Drug ineffective [None]
  - Heart rate increased [None]
  - Depression [None]
